FAERS Safety Report 20495431 (Version 1)
Quarter: 2022Q1

REPORT INFORMATION
  Report Type: Report from Study
  Country: FR (occurrence: None)
  Receive Date: 20220221
  Receipt Date: 20220221
  Transmission Date: 20220423
  Serious: Yes (Hospitalization)
  Sender: FDA-Public Use
  Company Number: FR-ROCHE-3022339

PATIENT
  Age: 44 Year
  Sex: Female
  Weight: 85 kg

DRUGS (10)
  1. ATEZOLIZUMAB [Suspect]
     Active Substance: ATEZOLIZUMAB
     Indication: Triple negative breast cancer
     Dosage: ON 17/JAN/2022, HE RECEIVED LAST DOSE OF ATEZOLILZUMAB.
     Route: 041
     Dates: start: 20220117
  2. BEVACIZUMAB [Suspect]
     Active Substance: BEVACIZUMAB
     Indication: Triple negative breast cancer
     Dosage: ON 17/JAN/2022 , HE RECEIVED MOST RECENT DOSE OF BEVACIZUMAB.
     Route: 042
     Dates: start: 20220117, end: 20220117
  3. GEMCITABINE [Suspect]
     Active Substance: GEMCITABINE
     Indication: Triple negative breast cancer
     Route: 042
     Dates: start: 20220117
  4. CARBOPLATIN [Suspect]
     Active Substance: CARBOPLATIN
     Indication: Triple negative breast cancer
     Route: 042
     Dates: start: 20220117
  5. VITAMIN B12 [Concomitant]
     Active Substance: CYANOCOBALAMIN
  6. CHOLECALCIFEROL [Concomitant]
     Active Substance: CHOLECALCIFEROL
  7. FERROUS SULFATE [Concomitant]
     Active Substance: FERROUS SULFATE
  8. METOPRAMIDE [Concomitant]
  9. ONDANSETRON [Concomitant]
     Active Substance: ONDANSETRON
  10. LOPERAMIDE [Concomitant]
     Active Substance: LOPERAMIDE

REACTIONS (1)
  - Pyrexia [Not Recovered/Not Resolved]

NARRATIVE: CASE EVENT DATE: 20220208
